FAERS Safety Report 11715154 (Version 2)
Quarter: 2015Q4

REPORT INFORMATION
  Report Type: Report from Study
  Country: US (occurrence: US)
  Receive Date: 20151109
  Receipt Date: 20151112
  Transmission Date: 20160304
  Serious: Yes (Other)
  Sender: FDA-Public Use
  Company Number: US-GILEAD-2015-0180719

PATIENT
  Age: 59 Year
  Sex: Female

DRUGS (1)
  1. AMBRISENTAN [Suspect]
     Active Substance: AMBRISENTAN
     Indication: PRODUCT USED FOR UNKNOWN INDICATION
     Dosage: 10 MG, QD
     Route: 065
     Dates: start: 20151012

REACTIONS (10)
  - Urinary tract infection [Unknown]
  - Nausea [Unknown]
  - Oedema [Unknown]
  - Swelling [Unknown]
  - Dyspnoea exertional [Unknown]
  - Urinary retention [Unknown]
  - Bladder discomfort [Unknown]
  - Fluid retention [Unknown]
  - Unevaluable event [Unknown]
  - Dyspnoea [Unknown]

NARRATIVE: CASE EVENT DATE: 20151012
